FAERS Safety Report 7295156-X (Version None)
Quarter: 2011Q1

REPORT INFORMATION
  Report Type: 
  Country: None (occurrence: None)
  Receive Date: 20110211
  Receipt Date: 20110211
  Transmission Date: 20110831
  Serious: Yes (Other)
  Sender: FDA-Public Use
  Company Number: None

PATIENT
  Age: 20 Year
  Sex: Female
  Weight: 54.4316 kg

DRUGS (2)
  1. ZYRTEC [Suspect]
     Indication: SEASONAL ALLERGY
     Dosage: 1 PILL DAILY PO
     Route: 048
     Dates: start: 20041110, end: 20110205
  2. ZYRTEC [Suspect]
     Indication: SEASONAL ALLERGY
     Dosage: 1 PILL DAILY PO
     Route: 048
     Dates: start: 20040801, end: 20041101

REACTIONS (4)
  - DIZZINESS [None]
  - URTICARIA [None]
  - WITHDRAWAL SYNDROME [None]
  - DYSPNOEA [None]
